FAERS Safety Report 20574692 (Version 2)
Quarter: 2022Q1

REPORT INFORMATION
  Report Type: Spontaneous
  Country: CA (occurrence: CA)
  Receive Date: 20220309
  Receipt Date: 20220330
  Transmission Date: 20220423
  Serious: Yes (Death, Other)
  Sender: FDA-Public Use
  Company Number: CA-BAXTER-2022BAX004750

PATIENT
  Age: 80 Year
  Sex: Male
  Weight: 69 kg

DRUGS (318)
  1. NOREPINEPHRINE BITARTRATE [Suspect]
     Active Substance: NOREPINEPHRINE BITARTRATE
     Indication: Stress
     Route: 042
  2. NOREPINEPHRINE BITARTRATE [Suspect]
     Active Substance: NOREPINEPHRINE BITARTRATE
     Indication: Product used for unknown indication
     Route: 042
  3. NOREPINEPHRINE BITARTRATE [Suspect]
     Active Substance: NOREPINEPHRINE BITARTRATE
     Route: 065
  4. NOREPINEPHRINE BITARTRATE [Suspect]
     Active Substance: NOREPINEPHRINE BITARTRATE
     Route: 065
  5. NOREPINEPHRINE BITARTRATE [Suspect]
     Active Substance: NOREPINEPHRINE BITARTRATE
     Route: 065
  6. NOREPINEPHRINE BITARTRATE [Suspect]
     Active Substance: NOREPINEPHRINE BITARTRATE
     Route: 065
  7. NOREPINEPHRINE BITARTRATE [Suspect]
     Active Substance: NOREPINEPHRINE BITARTRATE
     Route: 065
  8. NOREPINEPHRINE BITARTRATE [Suspect]
     Active Substance: NOREPINEPHRINE BITARTRATE
     Route: 042
  9. NOREPINEPHRINE BITARTRATE [Suspect]
     Active Substance: NOREPINEPHRINE BITARTRATE
     Route: 042
  10. NOREPINEPHRINE BITARTRATE [Suspect]
     Active Substance: NOREPINEPHRINE BITARTRATE
     Route: 042
  11. NOREPINEPHRINE BITARTRATE [Suspect]
     Active Substance: NOREPINEPHRINE BITARTRATE
     Route: 042
  12. NOREPINEPHRINE BITARTRATE [Suspect]
     Active Substance: NOREPINEPHRINE BITARTRATE
     Route: 042
  13. OSMITROL [Suspect]
     Active Substance: MANNITOL
     Indication: Nutritional supplementation
     Dosage: DOSAGE FORM: NOT SPECIFIED
     Route: 042
  14. HEPARIN SODIUM\SODIUM CHLORIDE [Suspect]
     Active Substance: HEPARIN SODIUM\SODIUM CHLORIDE
     Indication: Anticoagulant therapy
     Dosage: DOSAGE FORM: SOLUTION INTRAVENOUS?FREQUENCY: AS REQUIRED
     Route: 042
  15. HEPARIN SODIUM\SODIUM CHLORIDE [Suspect]
     Active Substance: HEPARIN SODIUM\SODIUM CHLORIDE
     Indication: Intentional product misuse
     Route: 042
  16. HEPARIN SODIUM\SODIUM CHLORIDE [Suspect]
     Active Substance: HEPARIN SODIUM\SODIUM CHLORIDE
     Indication: Off label use
     Route: 042
  17. HEPARIN SODIUM\SODIUM CHLORIDE [Suspect]
     Active Substance: HEPARIN SODIUM\SODIUM CHLORIDE
     Route: 042
  18. HEPARIN SODIUM\SODIUM CHLORIDE [Suspect]
     Active Substance: HEPARIN SODIUM\SODIUM CHLORIDE
     Route: 065
  19. HEPARIN SODIUM\SODIUM CHLORIDE [Suspect]
     Active Substance: HEPARIN SODIUM\SODIUM CHLORIDE
     Route: 042
  20. HEPARIN SODIUM\SODIUM CHLORIDE [Suspect]
     Active Substance: HEPARIN SODIUM\SODIUM CHLORIDE
     Route: 042
  21. HEPARIN SODIUM\SODIUM CHLORIDE [Suspect]
     Active Substance: HEPARIN SODIUM\SODIUM CHLORIDE
     Route: 042
  22. HEPARIN SODIUM\SODIUM CHLORIDE [Suspect]
     Active Substance: HEPARIN SODIUM\SODIUM CHLORIDE
     Route: 042
  23. POTASSIUM CHLORIDE [Suspect]
     Active Substance: POTASSIUM CHLORIDE
     Indication: Product used for unknown indication
     Dosage: DOSAGE FORM: NOT SPECIFIED
     Route: 065
  24. DEXTROSE [Suspect]
     Active Substance: DEXTROSE
     Indication: Nutritional supplementation
     Dosage: DOSAGE FORM: NOT SPECIFIED
     Route: 065
  25. DEXTROSE [Suspect]
     Active Substance: DEXTROSE
     Indication: Intentional product misuse
     Dosage: DOSAGE FORM: LIQUID PARENTERAL (UNSPECIFIED)?FREQUENCY: AS REQUIRED
     Route: 042
  26. DEXTROSE [Suspect]
     Active Substance: DEXTROSE
     Route: 042
  27. DEXTROSE [Suspect]
     Active Substance: DEXTROSE
     Route: 042
  28. CEFTRIAXONE SODIUM [Suspect]
     Active Substance: CEFTRIAXONE SODIUM
     Indication: Bacterial infection
     Route: 042
  29. CEFTRIAXONE SODIUM [Suspect]
     Active Substance: CEFTRIAXONE SODIUM
     Route: 042
  30. CEFTRIAXONE SODIUM [Suspect]
     Active Substance: CEFTRIAXONE SODIUM
     Route: 042
  31. SODIUM BICARBONATE [Suspect]
     Active Substance: SODIUM BICARBONATE
     Indication: Nutritional supplementation
     Dosage: FORM: NOT SPECIFIED
     Route: 042
  32. ANTICOAGULANT SODIUM CITRATE SOLUTION [Suspect]
     Active Substance: TRISODIUM CITRATE DIHYDRATE
     Indication: Thrombosis
     Dosage: DOSAGE FORM: NOT SPECIFIED?FREQUENCY: AS REQUIRED
     Route: 065
  33. ANTICOAGULANT SODIUM CITRATE SOLUTION [Suspect]
     Active Substance: TRISODIUM CITRATE DIHYDRATE
     Dosage: FORM NOT SPECIFIED
     Route: 065
  34. ANTICOAGULANT SODIUM CITRATE SOLUTION [Suspect]
     Active Substance: TRISODIUM CITRATE DIHYDRATE
     Route: 065
  35. ANTICOAGULANT SODIUM CITRATE SOLUTION [Suspect]
     Active Substance: TRISODIUM CITRATE DIHYDRATE
     Route: 065
  36. ACETAMINOPHEN [Suspect]
     Active Substance: ACETAMINOPHEN
     Indication: Analgesic therapy
     Route: 048
  37. ACETAMINOPHEN [Suspect]
     Active Substance: ACETAMINOPHEN
     Indication: Off label use
     Dosage: DOSAGE FORM: NOT SPECIFIED
     Route: 048
  38. ACETAMINOPHEN [Suspect]
     Active Substance: ACETAMINOPHEN
     Route: 048
  39. ACETAMINOPHEN [Suspect]
     Active Substance: ACETAMINOPHEN
     Route: 048
  40. ALLOPURINOL [Suspect]
     Active Substance: ALLOPURINOL
     Indication: Blood uric acid increased
     Dosage: DOSAGE FORM: TABLETS
     Route: 048
  41. ALLOPURINOL [Suspect]
     Active Substance: ALLOPURINOL
     Indication: Intentional product misuse
     Dosage: DOSAGE FORM: TABLETS
     Route: 048
  42. ALLOPURINOL [Suspect]
     Active Substance: ALLOPURINOL
     Indication: Off label use
     Dosage: DOSAGE FORM: TABLETS
     Route: 065
  43. ALLOPURINOL [Suspect]
     Active Substance: ALLOPURINOL
     Dosage: DOSAGE FORM: TABLETS
     Route: 065
  44. ALLOPURINOL [Suspect]
     Active Substance: ALLOPURINOL
     Dosage: TABLETS
     Route: 048
  45. ALLOPURINOL [Suspect]
     Active Substance: ALLOPURINOL
     Dosage: TABLETS
     Route: 048
  46. ALLOPURINOL [Suspect]
     Active Substance: ALLOPURINOL
     Route: 048
  47. ALLOPURINOL [Suspect]
     Active Substance: ALLOPURINOL
     Route: 048
  48. AMIODARONE HYDROCHLORIDE [Suspect]
     Active Substance: AMIODARONE HYDROCHLORIDE
     Indication: Ventricular fibrillation
     Route: 042
  49. AMIODARONE HYDROCHLORIDE [Suspect]
     Active Substance: AMIODARONE HYDROCHLORIDE
     Indication: Drug therapy
     Route: 042
  50. AMIODARONE HYDROCHLORIDE [Suspect]
     Active Substance: AMIODARONE HYDROCHLORIDE
     Indication: Intentional product misuse
     Route: 042
  51. AMIODARONE HYDROCHLORIDE [Suspect]
     Active Substance: AMIODARONE HYDROCHLORIDE
     Route: 065
  52. AMIODARONE HYDROCHLORIDE [Suspect]
     Active Substance: AMIODARONE HYDROCHLORIDE
     Route: 042
  53. AMIODARONE HYDROCHLORIDE [Suspect]
     Active Substance: AMIODARONE HYDROCHLORIDE
     Route: 042
  54. AMIODARONE HYDROCHLORIDE [Suspect]
     Active Substance: AMIODARONE HYDROCHLORIDE
     Route: 065
  55. AMIODARONE HYDROCHLORIDE [Suspect]
     Active Substance: AMIODARONE HYDROCHLORIDE
     Route: 065
  56. AMIODARONE HYDROCHLORIDE [Suspect]
     Active Substance: AMIODARONE HYDROCHLORIDE
     Route: 042
  57. AMIODARONE HYDROCHLORIDE [Suspect]
     Active Substance: AMIODARONE HYDROCHLORIDE
     Route: 042
  58. AMIODARONE HYDROCHLORIDE [Suspect]
     Active Substance: AMIODARONE HYDROCHLORIDE
     Route: 042
  59. AMIODARONE HYDROCHLORIDE [Suspect]
     Active Substance: AMIODARONE HYDROCHLORIDE
     Route: 042
  60. ARANESP [Suspect]
     Active Substance: DARBEPOETIN ALFA
     Indication: Anaemia
     Dosage: DOSAGE FORM: SOLUTION INTRAVENOUS?FREQUENCY: CYCLICAL
     Route: 042
  61. ARANESP [Suspect]
     Active Substance: DARBEPOETIN ALFA
     Route: 042
  62. ARANESP [Suspect]
     Active Substance: DARBEPOETIN ALFA
     Route: 042
  63. ARANESP [Suspect]
     Active Substance: DARBEPOETIN ALFA
     Dosage: FORM: SOLUTION INTRAVENOUS
     Route: 042
  64. ARANESP [Suspect]
     Active Substance: DARBEPOETIN ALFA
     Route: 042
  65. ARANESP [Suspect]
     Active Substance: DARBEPOETIN ALFA
     Route: 042
  66. ARANESP [Suspect]
     Active Substance: DARBEPOETIN ALFA
     Route: 042
  67. ARANESP [Suspect]
     Active Substance: DARBEPOETIN ALFA
     Route: 042
  68. ARANESP [Suspect]
     Active Substance: DARBEPOETIN ALFA
     Route: 042
  69. ARANESP [Suspect]
     Active Substance: DARBEPOETIN ALFA
     Route: 042
  70. ARANESP [Suspect]
     Active Substance: DARBEPOETIN ALFA
     Route: 042
  71. ARANESP [Suspect]
     Active Substance: DARBEPOETIN ALFA
     Route: 042
  72. ARANESP [Suspect]
     Active Substance: DARBEPOETIN ALFA
     Route: 042
  73. ARANESP [Suspect]
     Active Substance: DARBEPOETIN ALFA
     Route: 042
  74. ARANESP [Suspect]
     Active Substance: DARBEPOETIN ALFA
     Route: 042
  75. ARANESP [Suspect]
     Active Substance: DARBEPOETIN ALFA
     Route: 065
  76. ARANESP [Suspect]
     Active Substance: DARBEPOETIN ALFA
     Route: 065
  77. ARANESP [Suspect]
     Active Substance: DARBEPOETIN ALFA
     Route: 065
  78. ARANESP [Suspect]
     Active Substance: DARBEPOETIN ALFA
     Route: 065
  79. ARANESP [Suspect]
     Active Substance: DARBEPOETIN ALFA
     Route: 065
  80. ATROVENT [Suspect]
     Active Substance: IPRATROPIUM BROMIDE
     Indication: Sleep disorder therapy
     Dosage: DOSAGE FORM: NOT SPECIFIED?ROUTE: INHALATION
     Route: 065
  81. ATROVENT [Suspect]
     Active Substance: IPRATROPIUM BROMIDE
     Indication: Dyspnoea
     Dosage: ROUTE: INHALATION
     Route: 065
  82. ATROVENT [Suspect]
     Active Substance: IPRATROPIUM BROMIDE
     Dosage: INHALATION
     Route: 065
  83. ATROVENT [Suspect]
     Active Substance: IPRATROPIUM BROMIDE
     Route: 065
  84. ATROVENT [Suspect]
     Active Substance: IPRATROPIUM BROMIDE
     Dosage: INHALATION
     Route: 065
  85. ATROVENT [Suspect]
     Active Substance: IPRATROPIUM BROMIDE
     Dosage: INHALATION
     Route: 065
  86. ATROVENT [Suspect]
     Active Substance: IPRATROPIUM BROMIDE
     Route: 065
  87. ATROVENT [Suspect]
     Active Substance: IPRATROPIUM BROMIDE
     Dosage: INHALATION
     Route: 065
  88. ATROVENT [Suspect]
     Active Substance: IPRATROPIUM BROMIDE
     Route: 065
  89. ATROVENT [Suspect]
     Active Substance: IPRATROPIUM BROMIDE
     Route: 050
  90. BETA CAROTENE [Suspect]
     Active Substance: BETA CAROTENE
     Indication: Nutritional supplementation
     Route: 065
  91. BETAMETHASONE [Suspect]
     Active Substance: BETAMETHASONE
     Indication: Swelling
     Dosage: FREQUENCY: AS REQUIRED
     Route: 061
  92. BETAMETHASONE [Suspect]
     Active Substance: BETAMETHASONE
     Route: 061
  93. BETAMETHASONE [Suspect]
     Active Substance: BETAMETHASONE
     Route: 061
  94. BETAMETHASONE [Suspect]
     Active Substance: BETAMETHASONE
     Route: 065
  95. BETAMETHASONE [Suspect]
     Active Substance: BETAMETHASONE
     Route: 065
  96. BETAMETHASONE [Suspect]
     Active Substance: BETAMETHASONE
     Route: 061
  97. BETAMETHASONE [Suspect]
     Active Substance: BETAMETHASONE
     Route: 061
  98. BETAMETHASONE [Suspect]
     Active Substance: BETAMETHASONE
     Route: 061
  99. BETAMETHASONE [Suspect]
     Active Substance: BETAMETHASONE
     Route: 061
  100. BETAMETHASONE [Suspect]
     Active Substance: BETAMETHASONE
     Route: 061
  101. BETAMETHASONE [Suspect]
     Active Substance: BETAMETHASONE
     Dosage: DOSAGE FORM: NOT SPECIFIED
     Route: 061
  102. BETAMETHASONE [Suspect]
     Active Substance: BETAMETHASONE
     Route: 061
  103. BETAMETHASONE DIPROPIONATE\BETAMETHASONE SODIUM PHOSPHATE [Suspect]
     Active Substance: BETAMETHASONE DIPROPIONATE\BETAMETHASONE SODIUM PHOSPHATE
     Indication: Swelling
     Route: 061
  104. BETAMETHASONE DIPROPIONATE\BETAMETHASONE SODIUM PHOSPHATE [Suspect]
     Active Substance: BETAMETHASONE DIPROPIONATE\BETAMETHASONE SODIUM PHOSPHATE
     Route: 061
  105. BETAMETHASONE DIPROPIONATE\BETAMETHASONE SODIUM PHOSPHATE [Suspect]
     Active Substance: BETAMETHASONE DIPROPIONATE\BETAMETHASONE SODIUM PHOSPHATE
     Route: 065
  106. BETAMETHASONE DIPROPIONATE\BETAMETHASONE SODIUM PHOSPHATE [Suspect]
     Active Substance: BETAMETHASONE DIPROPIONATE\BETAMETHASONE SODIUM PHOSPHATE
     Route: 061
  107. BETAMETHASONE DIPROPIONATE\BETAMETHASONE SODIUM PHOSPHATE [Suspect]
     Active Substance: BETAMETHASONE DIPROPIONATE\BETAMETHASONE SODIUM PHOSPHATE
     Route: 061
  108. BISACODYL [Suspect]
     Active Substance: BISACODYL
     Indication: Ventricular fibrillation
     Route: 065
  109. BISACODYL [Suspect]
     Active Substance: BISACODYL
     Indication: Dyspnoea
     Route: 054
  110. BISACODYL [Suspect]
     Active Substance: BISACODYL
     Indication: Drug therapy
     Dosage: DOSAGE FORM: NOT SPECIFIED?FREQUENCY: AS REQUIRED
     Route: 054
  111. BISACODYL [Suspect]
     Active Substance: BISACODYL
     Indication: Constipation
     Route: 054
  112. BISACODYL [Suspect]
     Active Substance: BISACODYL
     Indication: Off label use
     Dosage: FREQUENCY: AS REQUIRED
     Route: 054
  113. BISACODYL [Suspect]
     Active Substance: BISACODYL
     Dosage: FREQUENCY: AS REQUIRED
     Route: 054
  114. BISACODYL [Suspect]
     Active Substance: BISACODYL
     Route: 054
  115. BISACODYL [Suspect]
     Active Substance: BISACODYL
     Route: 054
  116. BISMUTH SUBNITRATE [Suspect]
     Active Substance: BISMUTH SUBNITRATE
     Indication: Constipation
     Dosage: DOSAGE FORM: NOT SPECIFIED?FREQUENCY: AS REQUIRED
     Route: 065
  117. BISMUTH SUBNITRATE [Suspect]
     Active Substance: BISMUTH SUBNITRATE
     Indication: Constipation
     Route: 054
  118. BISMUTH SUBNITRATE [Suspect]
     Active Substance: BISMUTH SUBNITRATE
     Route: 054
  119. CALCITRIOL [Suspect]
     Active Substance: CALCITRIOL
     Indication: Vitamin D
     Route: 048
  120. CALCITRIOL [Suspect]
     Active Substance: CALCITRIOL
     Dosage: DOSAGE FORM: NOT SPECIFIED
     Route: 048
  121. CALCITRIOL [Suspect]
     Active Substance: CALCITRIOL
     Route: 065
  122. CALCIUM CHLORIDE\DEXTROSE\POTASSIUM CHLORIDE\SODIUM CHLORIDE [Suspect]
     Active Substance: CALCIUM CHLORIDE\DEXTROSE\POTASSIUM CHLORIDE\SODIUM CHLORIDE
     Indication: Nutritional supplementation
     Route: 065
  123. DALTEPARIN SODIUM [Suspect]
     Active Substance: DALTEPARIN SODIUM
     Indication: Thrombosis
     Route: 065
  124. DALTEPARIN SODIUM [Suspect]
     Active Substance: DALTEPARIN SODIUM
     Indication: Pulmonary embolism
     Route: 065
  125. DALTEPARIN SODIUM [Suspect]
     Active Substance: DALTEPARIN SODIUM
     Route: 065
  126. DALTEPARIN SODIUM [Suspect]
     Active Substance: DALTEPARIN SODIUM
     Route: 048
  127. DALTEPARIN SODIUM [Suspect]
     Active Substance: DALTEPARIN SODIUM
     Route: 065
  128. DIPYRONE [Suspect]
     Active Substance: DIPYRONE
     Indication: Vitamin supplementation
     Route: 042
  129. DIPYRONE [Suspect]
     Active Substance: DIPYRONE
     Route: 042
  130. DIPYRONE [Suspect]
     Active Substance: DIPYRONE
     Route: 065
  131. DIPYRONE [Suspect]
     Active Substance: DIPYRONE
     Route: 065
  132. DIPYRONE [Suspect]
     Active Substance: DIPYRONE
     Route: 042
  133. DIPYRONE [Suspect]
     Active Substance: DIPYRONE
     Route: 042
  134. DISTIGMINE BROMIDE [Suspect]
     Active Substance: DISTIGMINE BROMIDE
     Indication: Dyspnoea
     Route: 048
  135. DISTIGMINE BROMIDE [Suspect]
     Active Substance: DISTIGMINE BROMIDE
     Dosage: TABLETS
     Route: 048
  136. DISTIGMINE BROMIDE [Suspect]
     Active Substance: DISTIGMINE BROMIDE
     Route: 048
  137. DISTIGMINE BROMIDE [Suspect]
     Active Substance: DISTIGMINE BROMIDE
     Dosage: TABLETS
     Route: 048
  138. DISTIGMINE BROMIDE [Suspect]
     Active Substance: DISTIGMINE BROMIDE
     Route: 048
  139. DISTIGMINE BROMIDE [Suspect]
     Active Substance: DISTIGMINE BROMIDE
     Route: 065
  140. DOBUTAMINE HYDROCHLORIDE [Suspect]
     Active Substance: DOBUTAMINE HYDROCHLORIDE
     Indication: Cardiogenic shock
     Route: 042
  141. DOBUTAMINE HYDROCHLORIDE [Suspect]
     Active Substance: DOBUTAMINE HYDROCHLORIDE
     Route: 042
  142. DOBUTAMINE HYDROCHLORIDE [Suspect]
     Active Substance: DOBUTAMINE HYDROCHLORIDE
     Route: 065
  143. FLUTICASONE FUROATE [Suspect]
     Active Substance: FLUTICASONE FUROATE
     Indication: Nutritional supplementation
     Route: 065
  144. FLUTICASONE FUROATE [Suspect]
     Active Substance: FLUTICASONE FUROATE
     Route: 065
  145. FLUTICASONE FUROATE [Suspect]
     Active Substance: FLUTICASONE FUROATE
     Route: 065
  146. FLUTICASONE FUROATE [Suspect]
     Active Substance: FLUTICASONE FUROATE
     Route: 065
  147. GABAPENTIN [Suspect]
     Active Substance: GABAPENTIN
     Indication: Neuralgia
     Route: 065
  148. GABAPENTIN [Suspect]
     Active Substance: GABAPENTIN
     Indication: Intentional product misuse
     Dosage: DOSAGE FORM: NOT SPECIFIED
     Route: 048
  149. GABAPENTIN [Suspect]
     Active Substance: GABAPENTIN
     Route: 048
  150. HEPARIN SODIUM [Suspect]
     Active Substance: HEPARIN SODIUM
     Indication: Anticoagulant therapy
     Dosage: FREQUENCY: AS REQUIRED
     Route: 042
  151. HEPARIN SODIUM [Suspect]
     Active Substance: HEPARIN SODIUM
     Route: 042
  152. HEPARIN SODIUM [Suspect]
     Active Substance: HEPARIN SODIUM
     Route: 042
  153. HEPARIN SODIUM [Suspect]
     Active Substance: HEPARIN SODIUM
     Route: 042
  154. HEPARIN SODIUM [Suspect]
     Active Substance: HEPARIN SODIUM
     Route: 042
  155. HEPARIN SODIUM [Suspect]
     Active Substance: HEPARIN SODIUM
     Route: 042
  156. DEXTROSE\SODIUM CHLORIDE [Suspect]
     Active Substance: DEXTROSE\SODIUM CHLORIDE
     Indication: Nutritional supplementation
     Route: 042
  157. DEXTROSE\SODIUM CHLORIDE [Suspect]
     Active Substance: DEXTROSE\SODIUM CHLORIDE
     Dosage: FREQUENCY: AS REQUIRED
     Route: 042
  158. DEXTROSE\SODIUM CHLORIDE [Suspect]
     Active Substance: DEXTROSE\SODIUM CHLORIDE
     Route: 042
  159. HYDROMORPHONE HYDROCHLORIDE [Suspect]
     Active Substance: HYDROMORPHONE HYDROCHLORIDE
     Indication: Analgesic therapy
     Route: 058
  160. HYDROMORPHONE HYDROCHLORIDE [Suspect]
     Active Substance: HYDROMORPHONE HYDROCHLORIDE
     Route: 058
  161. HYDROMORPHONE HYDROCHLORIDE [Suspect]
     Active Substance: HYDROMORPHONE HYDROCHLORIDE
     Route: 058
  162. HYDROMORPHONE HYDROCHLORIDE [Suspect]
     Active Substance: HYDROMORPHONE HYDROCHLORIDE
     Route: 058
  163. HYDROMORPHONE HYDROCHLORIDE [Suspect]
     Active Substance: HYDROMORPHONE HYDROCHLORIDE
     Route: 058
  164. HYDROMORPHONE HYDROCHLORIDE [Suspect]
     Active Substance: HYDROMORPHONE HYDROCHLORIDE
     Route: 058
  165. INSULIN ASPART [Suspect]
     Active Substance: INSULIN ASPART
     Indication: Diabetes mellitus
     Route: 058
  166. INSULIN ASPART [Suspect]
     Active Substance: INSULIN ASPART
     Route: 048
  167. INSULIN ASPART [Suspect]
     Active Substance: INSULIN ASPART
     Route: 065
  168. INSULIN DEGLUDEC [Suspect]
     Active Substance: INSULIN DEGLUDEC
     Indication: Diabetes mellitus
     Route: 058
  169. INSULIN DEGLUDEC [Suspect]
     Active Substance: INSULIN DEGLUDEC
     Route: 058
  170. INSULIN DEGLUDEC [Suspect]
     Active Substance: INSULIN DEGLUDEC
     Route: 058
  171. INSULIN DEGLUDEC [Suspect]
     Active Substance: INSULIN DEGLUDEC
     Route: 065
  172. IPRATROPIUM BROMIDE [Suspect]
     Active Substance: IPRATROPIUM BROMIDE
     Indication: Sleep disorder therapy
     Route: 065
  173. IPRATROPIUM BROMIDE [Suspect]
     Active Substance: IPRATROPIUM BROMIDE
     Indication: Dyspnoea
     Dosage: ROUTE: INHALATION
     Route: 050
  174. IPRATROPIUM BROMIDE [Suspect]
     Active Substance: IPRATROPIUM BROMIDE
     Dosage: ROUTE: INHALATION
     Route: 065
  175. IPRATROPIUM BROMIDE [Suspect]
     Active Substance: IPRATROPIUM BROMIDE
     Route: 065
  176. PANAX GINSENG WHOLE [Suspect]
     Active Substance: PANAX GINSENG WHOLE
     Indication: Nutritional supplementation
     Route: 065
  177. LANSOPRAZOLE [Suspect]
     Active Substance: LANSOPRAZOLE
     Indication: Intentional product misuse
     Route: 048
  178. LANSOPRAZOLE [Suspect]
     Active Substance: LANSOPRAZOLE
     Indication: Antacid therapy
     Dosage: DOSAGE FORM: CAPSULE DELAYED RELEASE
     Route: 048
  179. LANSOPRAZOLE [Suspect]
     Active Substance: LANSOPRAZOLE
     Route: 065
  180. LANSOPRAZOLE [Suspect]
     Active Substance: LANSOPRAZOLE
     Route: 065
  181. LANTHANUM CARBONATE [Suspect]
     Active Substance: LANTHANUM CARBONATE
     Indication: Blood phosphorus increased
     Route: 065
  182. LANTHANUM CARBONATE [Suspect]
     Active Substance: LANTHANUM CARBONATE
     Dosage: FREQUENCY: AS REQUIRED
     Route: 048
  183. LANTHANUM CARBONATE [Suspect]
     Active Substance: LANTHANUM CARBONATE
     Route: 048
  184. LANTHANUM CARBONATE [Suspect]
     Active Substance: LANTHANUM CARBONATE
     Route: 048
  185. LYPRESSIN [Suspect]
     Active Substance: LYPRESSIN
     Indication: Drug therapy
     Route: 042
  186. POLYETHYLENE GLYCOLS [Suspect]
     Active Substance: POLYETHYLENE GLYCOLS
     Indication: Constipation
     Dosage: MACROGOL 3350
     Route: 048
  187. POLYETHYLENE GLYCOLS [Suspect]
     Active Substance: POLYETHYLENE GLYCOLS
     Route: 048
  188. POLYETHYLENE GLYCOLS [Suspect]
     Active Substance: POLYETHYLENE GLYCOLS
     Route: 042
  189. POLYETHYLENE GLYCOLS [Suspect]
     Active Substance: POLYETHYLENE GLYCOLS
     Route: 048
  190. POLYETHYLENE GLYCOLS [Suspect]
     Active Substance: POLYETHYLENE GLYCOLS
     Route: 048
  191. MAGNESIUM OXIDE [Suspect]
     Active Substance: MAGNESIUM OXIDE
     Indication: Constipation
     Dosage: DOSAGE FORM: NOT SPECIFIED?FREQUENCY: AS REQUIRED
     Route: 065
  192. MALTOSE [Suspect]
     Active Substance: MALTOSE
     Indication: Nutritional supplementation
     Route: 042
  193. MELATONIN [Suspect]
     Active Substance: MELATONIN
     Indication: Sleep disorder therapy
     Dosage: DOSAGE FORM: NOT SPECIFIED
     Route: 048
  194. MELATONIN [Suspect]
     Active Substance: MELATONIN
     Indication: Intentional product misuse
     Route: 048
  195. MELATONIN [Suspect]
     Active Substance: MELATONIN
     Route: 048
  196. METRONIDAZOLE [Suspect]
     Active Substance: METRONIDAZOLE
     Indication: Bacterial infection
     Dosage: DOSAGE FORM: NOT SPECIFIED
     Route: 048
  197. METRONIDAZOLE [Suspect]
     Active Substance: METRONIDAZOLE
     Route: 065
  198. METRONIDAZOLE [Suspect]
     Active Substance: METRONIDAZOLE
     Route: 065
  199. METRONIDAZOLE [Suspect]
     Active Substance: METRONIDAZOLE
     Route: 048
  200. METRONIDAZOLE [Suspect]
     Active Substance: METRONIDAZOLE
     Route: 048
  201. METRONIDAZOLE [Suspect]
     Active Substance: METRONIDAZOLE
     Route: 048
  202. SODIUM PHOSPHATE, MONOBASIC [Suspect]
     Active Substance: SODIUM PHOSPHATE, MONOBASIC
     Indication: Constipation
     Dosage: FREQUENCY: AS REQUIRED
     Route: 065
  203. SODIUM PHOSPHATE, MONOBASIC [Suspect]
     Active Substance: SODIUM PHOSPHATE, MONOBASIC
     Dosage: FREQUENCY: AS REQUIRED
     Route: 054
  204. ONDANSETRON [Suspect]
     Active Substance: ONDANSETRON
     Indication: Vomiting
     Route: 042
  205. ONDANSETRON [Suspect]
     Active Substance: ONDANSETRON
     Dosage: DOSAGE FORM: NOT SPECIFIED
     Route: 042
  206. ONDANSETRON [Suspect]
     Active Substance: ONDANSETRON
     Route: 065
  207. ONDANSETRON [Suspect]
     Active Substance: ONDANSETRON
     Route: 042
  208. ONDANSETRON [Suspect]
     Active Substance: ONDANSETRON
     Route: 042
  209. ONDANSETRON [Suspect]
     Active Substance: ONDANSETRON
     Route: 042
  210. ONDANSETRON [Suspect]
     Active Substance: ONDANSETRON
     Route: 042
  211. OSELTAMIVIR PHOSPHATE [Suspect]
     Active Substance: OSELTAMIVIR PHOSPHATE
     Indication: Product used for unknown indication
     Route: 054
  212. OSELTAMIVIR PHOSPHATE [Suspect]
     Active Substance: OSELTAMIVIR PHOSPHATE
     Route: 065
  213. HERBALS\PAULLINIA CUPANA SEED [Suspect]
     Active Substance: HERBALS\PAULLINIA CUPANA SEED
     Indication: Nutritional supplementation
     Route: 042
  214. HERBALS\PAULLINIA CUPANA SEED [Suspect]
     Active Substance: HERBALS\PAULLINIA CUPANA SEED
     Route: 042
  215. PHYTONADIONE [Suspect]
     Active Substance: PHYTONADIONE
     Indication: Vitamin supplementation
     Route: 017
  216. PHYTONADIONE [Suspect]
     Active Substance: PHYTONADIONE
     Indication: Off label use
     Route: 042
  217. POLYETHYLENE GLYCOL [Suspect]
     Active Substance: POLYETHYLENE GLYCOL
     Indication: Constipation
     Dosage: POLYETHYLENE GLYCOL 4000
     Route: 048
  218. POTASSIUM CHLORATE [Suspect]
     Active Substance: POTASSIUM CHLORATE
     Indication: Product used for unknown indication
     Route: 065
  219. PREVACID [Suspect]
     Active Substance: LANSOPRAZOLE
     Indication: Antacid therapy
     Dosage: TABLETS DELAYED RELEASE
     Route: 065
  220. PYRIDOXINE HYDROCHLORIDE [Suspect]
     Active Substance: PYRIDOXINE HYDROCHLORIDE
     Indication: Vitamin supplementation
     Route: 048
  221. PYRIDOXINE HYDROCHLORIDE [Suspect]
     Active Substance: PYRIDOXINE HYDROCHLORIDE
     Route: 048
  222. PYRIDOXINE HYDROCHLORIDE [Suspect]
     Active Substance: PYRIDOXINE HYDROCHLORIDE
     Route: 048
  223. PYRIDOXINE HYDROCHLORIDE [Suspect]
     Active Substance: PYRIDOXINE HYDROCHLORIDE
     Route: 048
  224. ALBUTEROL [Suspect]
     Active Substance: ALBUTEROL
     Indication: Chronic obstructive pulmonary disease
     Dosage: DOSAGE FORM: NOT SPECIFIED ?ROUTE: INHALATION
     Route: 065
  225. ALBUTEROL [Suspect]
     Active Substance: ALBUTEROL
     Route: 065
  226. ALBUTEROL [Suspect]
     Active Substance: ALBUTEROL
     Dosage: INHALATION
     Route: 065
  227. ALBUTEROL [Suspect]
     Active Substance: ALBUTEROL
     Dosage: INHALATION
     Route: 065
  228. ALBUTEROL [Suspect]
     Active Substance: ALBUTEROL
     Route: 050
  229. ALBUTEROL [Suspect]
     Active Substance: ALBUTEROL
     Route: 050
  230. SODIUM CITRATE [Suspect]
     Active Substance: SODIUM CITRATE
     Indication: Thrombosis
     Dosage: FREQUENCY: NOT REQUIRED
     Route: 065
  231. SODIUM CITRATE [Suspect]
     Active Substance: SODIUM CITRATE
     Route: 065
  232. SODIUM CITRATE [Suspect]
     Active Substance: SODIUM CITRATE
     Route: 065
  233. SODIUM CITRATE [Suspect]
     Active Substance: SODIUM CITRATE
     Route: 065
  234. SIMVASTATIN [Suspect]
     Active Substance: SIMVASTATIN
     Indication: Blood cholesterol increased
     Dosage: TABLETS
     Route: 048
  235. SIMVASTATIN [Suspect]
     Active Substance: SIMVASTATIN
     Dosage: TABLETS
     Route: 048
  236. TRISODIUM CITRATE DIHYDRATE [Suspect]
     Active Substance: TRISODIUM CITRATE DIHYDRATE
     Indication: Thrombosis
     Dosage: FREQUENCY: AS REQUIRED
     Route: 065
  237. SODIUM FERRIC GLUCONATE COMPLEX [Suspect]
     Active Substance: SODIUM FERRIC GLUCONATE COMPLEX
     Indication: Iron deficiency
     Route: 042
  238. SODIUM FERRIC GLUCONATE COMPLEX [Suspect]
     Active Substance: SODIUM FERRIC GLUCONATE COMPLEX
     Route: 042
  239. SODIUM FERRIC GLUCONATE COMPLEX [Suspect]
     Active Substance: SODIUM FERRIC GLUCONATE COMPLEX
     Route: 042
  240. SODIUM FERRIC GLUCONATE COMPLEX [Suspect]
     Active Substance: SODIUM FERRIC GLUCONATE COMPLEX
     Route: 042
  241. SODIUM PHOSPHATE, MONOBASIC [Suspect]
     Active Substance: SODIUM PHOSPHATE, MONOBASIC
     Indication: Constipation
     Dosage: FREQUENCY: AS REQUIRED
     Route: 054
  242. SODIUM PHOSPHATE, MONOBASIC [Suspect]
     Active Substance: SODIUM PHOSPHATE, MONOBASIC
     Route: 054
  243. SODIUM PHOSPHATE, MONOBASIC [Suspect]
     Active Substance: SODIUM PHOSPHATE, MONOBASIC
     Route: 054
  244. SODIUM PICOSULFATE [Suspect]
     Active Substance: SODIUM PICOSULFATE
     Indication: Constipation
     Route: 054
  245. SODIUM PICOSULFATE [Suspect]
     Active Substance: SODIUM PICOSULFATE
     Indication: Analgesic therapy
     Dosage: DOSAGE FORM: NOT SPECIFIED
     Route: 065
  246. VILANTEROL TRIFENATATE [Suspect]
     Active Substance: VILANTEROL TRIFENATATE
     Indication: Dyspnoea
     Route: 048
  247. VILANTEROL TRIFENATATE [Suspect]
     Active Substance: VILANTEROL TRIFENATATE
     Route: 065
  248. VILANTEROL TRIFENATATE [Suspect]
     Active Substance: VILANTEROL TRIFENATATE
     Route: 065
  249. VILANTEROL TRIFENATATE [Suspect]
     Active Substance: VILANTEROL TRIFENATATE
     Route: 065
  250. VILANTEROL TRIFENATATE [Suspect]
     Active Substance: VILANTEROL TRIFENATATE
     Route: 065
  251. VILANTEROL TRIFENATATE [Suspect]
     Active Substance: VILANTEROL TRIFENATATE
     Route: 065
  252. VILANTEROL TRIFENATATE [Suspect]
     Active Substance: VILANTEROL TRIFENATATE
     Route: 065
  253. VILANTEROL TRIFENATATE [Suspect]
     Active Substance: VILANTEROL TRIFENATATE
     Route: 065
  254. VILANTEROL TRIFENATATE [Suspect]
     Active Substance: VILANTEROL TRIFENATATE
     Route: 042
  255. UMECLIDINIUM BROMIDE\VILANTEROL TRIFENATATE [Suspect]
     Active Substance: UMECLIDINIUM BROMIDE\VILANTEROL TRIFENATATE
     Indication: Dyspnoea
     Route: 048
  256. UMECLIDINIUM BROMIDE\VILANTEROL TRIFENATATE [Suspect]
     Active Substance: UMECLIDINIUM BROMIDE\VILANTEROL TRIFENATATE
     Route: 048
  257. UMECLIDINIUM BROMIDE\VILANTEROL TRIFENATATE [Suspect]
     Active Substance: UMECLIDINIUM BROMIDE\VILANTEROL TRIFENATATE
     Route: 048
  258. VITAMIN C [Suspect]
     Active Substance: ASCORBIC ACID
     Indication: Constipation
     Route: 048
  259. VITAMIN C [Suspect]
     Active Substance: ASCORBIC ACID
     Route: 048
  260. VITAMIN E [Suspect]
     Active Substance: .ALPHA.-TOCOPHEROL
     Indication: Nutritional supplementation
     Route: 042
  261. VITAMIN E [Suspect]
     Active Substance: .ALPHA.-TOCOPHEROL
     Route: 042
  262. WARFARIN [Suspect]
     Active Substance: WARFARIN
     Indication: Thrombosis
     Dosage: DOSAGE FORM: TABLETS
     Route: 048
  263. WARFARIN [Suspect]
     Active Substance: WARFARIN
     Dosage: TABLETS
     Route: 048
  264. WARFARIN [Suspect]
     Active Substance: WARFARIN
     Route: 065
  265. WARFARIN [Suspect]
     Active Substance: WARFARIN
     Route: 048
  266. WARFARIN [Suspect]
     Active Substance: WARFARIN
     Route: 065
  267. WARFARIN [Suspect]
     Active Substance: WARFARIN
     Dosage: TABLETS
     Route: 048
  268. WARFARIN [Suspect]
     Active Substance: WARFARIN
     Route: 042
  269. WARFARIN SODIUM [Suspect]
     Active Substance: WARFARIN SODIUM
     Indication: Thrombosis
     Dosage: DOSAGE FORM: TABLETS
     Route: 048
  270. XANTOFYL PALMITATE [Suspect]
     Active Substance: XANTOFYL PALMITATE
     Indication: Nutritional supplementation
     Dosage: FREQUENCY: AS REQUIRED
     Route: 042
  271. XANTOFYL PALMITATE [Suspect]
     Active Substance: XANTOFYL PALMITATE
     Dosage: FREQUENCY: AS REQUIRED
     Route: 042
  272. XYLOMETAZOLINE [Suspect]
     Active Substance: XYLOMETAZOLINE
     Indication: Dyspnoea
     Route: 065
  273. ZOCOR [Suspect]
     Active Substance: SIMVASTATIN
     Indication: Blood cholesterol increased
     Dosage: TABLETS
     Route: 048
  274. NOREPINEPHRINE BITARTRATE [Suspect]
     Active Substance: NOREPINEPHRINE BITARTRATE
     Indication: Stress
     Route: 048
  275. NOREPINEPHRINE BITARTRATE [Suspect]
     Active Substance: NOREPINEPHRINE BITARTRATE
     Route: 048
  276. VASOPRESSIN [Suspect]
     Active Substance: VASOPRESSIN
     Indication: Drug therapy
     Route: 042
  277. VASOPRESSIN [Suspect]
     Active Substance: VASOPRESSIN
     Route: 065
  278. VASOPRESSIN [Suspect]
     Active Substance: VASOPRESSIN
     Route: 042
  279. VASOPRESSIN [Suspect]
     Active Substance: VASOPRESSIN
     Route: 042
  280. VASOPRESSIN [Suspect]
     Active Substance: VASOPRESSIN
     Route: 042
  281. VASOPRESSIN [Suspect]
     Active Substance: VASOPRESSIN
     Route: 042
  282. VASOPRESSIN [Suspect]
     Active Substance: VASOPRESSIN
     Route: 042
  283. VASOPRESSIN [Suspect]
     Active Substance: VASOPRESSIN
     Route: 042
  284. VASOPRESSIN [Suspect]
     Active Substance: VASOPRESSIN
     Route: 065
  285. VASOPRESSIN [Suspect]
     Active Substance: VASOPRESSIN
     Route: 017
  286. VASOPRESSIN [Suspect]
     Active Substance: VASOPRESSIN
     Route: 042
  287. VASOPRESSIN [Suspect]
     Active Substance: VASOPRESSIN
     Route: 042
  288. VASOPRESSIN [Suspect]
     Active Substance: VASOPRESSIN
     Route: 042
  289. VASOPRESSIN [Suspect]
     Active Substance: VASOPRESSIN
     Route: 042
  290. VASOPRESSIN [Suspect]
     Active Substance: VASOPRESSIN
     Route: 042
  291. VASOPRESSIN [Suspect]
     Active Substance: VASOPRESSIN
     Route: 042
  292. VASOPRESSIN [Suspect]
     Active Substance: VASOPRESSIN
     Route: 042
  293. IPRATROPIUM [Suspect]
     Active Substance: IPRATROPIUM
     Indication: Dyspnoea
     Route: 065
  294. IPRATROPIUM [Suspect]
     Active Substance: IPRATROPIUM
     Route: 050
  295. IPRATROPIUM [Suspect]
     Active Substance: IPRATROPIUM
     Route: 050
  296. IPRATROPIUM [Suspect]
     Active Substance: IPRATROPIUM
     Route: 050
  297. ALBUTEROL [Concomitant]
     Active Substance: ALBUTEROL
     Indication: Chronic obstructive pulmonary disease
     Route: 050
  298. SIMVASTATIN [Concomitant]
     Active Substance: SIMVASTATIN
     Indication: Blood cholesterol increased
     Dosage: TABLETS
     Route: 048
  299. DISODIUM HYDROGEN CITRATE [Concomitant]
     Active Substance: DISODIUM HYDROGEN CITRATE
     Indication: Thrombosis
     Route: 065
  300. DISODIUM HYDROGEN CITRATE [Concomitant]
     Active Substance: DISODIUM HYDROGEN CITRATE
     Dosage: FREQUENCY: AS REQUIRED
     Route: 065
  301. VITAMIN D3 [Concomitant]
     Active Substance: CHOLECALCIFEROL
     Indication: Off label use
     Route: 065
  302. BETA CAROTENE [Concomitant]
     Active Substance: BETA CAROTENE
     Indication: Nutritional supplementation
     Route: 042
  303. BETA CAROTENE [Concomitant]
     Active Substance: BETA CAROTENE
     Route: 065
  304. VITAMIN C [Concomitant]
     Active Substance: ASCORBIC ACID
     Indication: Vitamin supplementation
     Route: 065
  305. VITAMIN C [Concomitant]
     Active Substance: ASCORBIC ACID
     Indication: Constipation
     Route: 065
  306. VITAMIN C [Concomitant]
     Active Substance: ASCORBIC ACID
     Route: 065
  307. VITAMIN C [Concomitant]
     Active Substance: ASCORBIC ACID
     Route: 065
  308. VITAMIN C [Concomitant]
     Active Substance: ASCORBIC ACID
     Route: 065
  309. VITAMIN C [Concomitant]
     Active Substance: ASCORBIC ACID
     Route: 065
  310. VITAMIN C [Concomitant]
     Active Substance: ASCORBIC ACID
     Route: 065
  311. VITAMIN C [Concomitant]
     Active Substance: ASCORBIC ACID
     Route: 048
  312. VITAMIN C [Concomitant]
     Active Substance: ASCORBIC ACID
     Route: 065
  313. MAGNESIUM OXIDE [Suspect]
     Active Substance: MAGNESIUM OXIDE
  314. MAGNESIUM OXIDE [Suspect]
     Active Substance: MAGNESIUM OXIDE
  315. MAGNESIUM TRISILICATE [Suspect]
     Active Substance: MAGNESIUM TRISILICATE
  316. MAGNESIUM TRISILICATE [Suspect]
     Active Substance: MAGNESIUM TRISILICATE
  317. SODIUM PHOSPHATE, MONOBASIC, ANHYDROUS [Suspect]
     Active Substance: SODIUM PHOSPHATE, MONOBASIC, ANHYDROUS
  318. SODIUM PHOSPHATE, MONOBASIC, ANHYDROUS [Suspect]
     Active Substance: SODIUM PHOSPHATE, MONOBASIC, ANHYDROUS

REACTIONS (18)
  - Abdominal distension [Fatal]
  - Appendicitis [Fatal]
  - Appendicolith [Fatal]
  - Ascites [Fatal]
  - Blood phosphorus increased [Fatal]
  - Cardiogenic shock [Fatal]
  - Condition aggravated [Fatal]
  - Constipation [Fatal]
  - General physical health deterioration [Fatal]
  - Multiple organ dysfunction syndrome [Fatal]
  - Off label use [Fatal]
  - Stress [Fatal]
  - Ventricular fibrillation [Fatal]
  - Sepsis [Fatal]
  - Abdominal pain [Fatal]
  - Hyponatraemia [Fatal]
  - Nausea [Fatal]
  - Vomiting [Fatal]
